FAERS Safety Report 8398622-9 (Version None)
Quarter: 2012Q2

REPORT INFORMATION
  Report Type: 
  Country: None (occurrence: None)
  Receive Date: 20120531
  Receipt Date: 20120523
  Transmission Date: 20120825
  Serious: Yes (Other)
  Sender: FDA-Public Use
  Company Number: CN-ROCHE-1071835

PATIENT
  Sex: Female
  Weight: 65 kg

DRUGS (3)
  1. EPIRUBICIN HYDROCHLORIDE [Suspect]
     Indication: BREAST CANCER
     Dosage: LAST DOSE PRIOR TO SAE 15/MAR/2012
     Route: 042
     Dates: start: 20111226, end: 20120322
  2. PACLITAXEL [Suspect]
     Indication: BREAST CANCER
     Dosage: LAST DOSE PRIOR TO SAE 15/MAR/2012
     Route: 042
     Dates: start: 20111226, end: 20120322
  3. HERCEPTIN [Suspect]
     Indication: BREAST CANCER
     Dosage: LAST DOSE PRIOR TO SAE 15/MAR/2012
     Route: 042
     Dates: start: 20111226, end: 20120322

REACTIONS (1)
  - HYPERGLYCAEMIA [None]
